FAERS Safety Report 14310335 (Version 1)
Quarter: 2017Q4

REPORT INFORMATION
  Report Type: Spontaneous
  Country: US (occurrence: US)
  Receive Date: 20171220
  Receipt Date: 20171220
  Transmission Date: 20180321
  Serious: Yes (Disabling)
  Sender: FDA-Public Use
  Company Number: None

PATIENT
  Age: 5 Year
  Sex: Male
  Weight: 15.75 kg

DRUGS (10)
  1. SINGULAIR [Concomitant]
     Active Substance: MONTELUKAST SODIUM
  2. PETROLEUM JELLY [Concomitant]
     Active Substance: PETROLATUM
  3. NEBULIZER [Concomitant]
     Active Substance: DEVICE
  4. CETRIZINE [Concomitant]
     Active Substance: CETIRIZINE HYDROCHLORIDE
  5. FLUTICISONE .005 OINTMENT [Suspect]
     Active Substance: FLUTICASONE
     Indication: DERMATITIS ATOPIC
     Route: 061
     Dates: start: 20171001, end: 20171127
  6. HYDROXYZINE [Concomitant]
     Active Substance: HYDROXYZINE HYDROCHLORIDE
  7. BAG BALM (MOISTURIZER) [Concomitant]
  8. PROBIOTIC CHEWABLE [Concomitant]
  9. ANTIHISTAMINES (BENADRYL) [Concomitant]
  10. IB PROFUN [Concomitant]

REACTIONS (1)
  - Adverse drug reaction [None]

NARRATIVE: CASE EVENT DATE: 20151208
